FAERS Safety Report 9949053 (Version 2)
Quarter: 2014Q2

REPORT INFORMATION
  Report Type: Spontaneous
  Country: US (occurrence: None)
  Receive Date: 20140122
  Receipt Date: 20140421
  Transmission Date: 20141212
  Serious: Yes (Other)
  Sender: FDA-Public Use
  Company Number: AEGR000177

PATIENT
  Age: 45 Year
  Sex: Female
  Weight: 54.4 kg

DRUGS (3)
  1. JUXTAPID [Suspect]
     Indication: TYPE IIA HYPERLIPIDAEMIA
     Route: 048
     Dates: start: 2013, end: 20130924
  2. WELCHOL (COLESEVELAM HYDROCHLORIDE) (625 MILLIGRAM, TABLET) (COLESEVELAM HYDROCHLORIDE) [Concomitant]
  3. SIMVASTATIN (SIMVASTATIN) [Concomitant]

REACTIONS (3)
  - Myalgia [None]
  - Burning sensation [None]
  - Abdominal discomfort [None]
